FAERS Safety Report 7609149-3 (Version None)
Quarter: 2011Q3

REPORT INFORMATION
  Report Type: 
  Country: None (occurrence: None)
  Receive Date: 20110714
  Receipt Date: 20110705
  Transmission Date: 20111222
  Serious: Yes (Hospitalization)
  Sender: FDA-Public Use
  Company Number: US-JNJFOC-20110703757

PATIENT
  Sex: Female
  Weight: 24.2 kg

DRUGS (7)
  1. REMICADE [Suspect]
     Route: 042
     Dates: start: 20080101
  2. PREVACID [Concomitant]
  3. TPN [Concomitant]
  4. HUMIRA [Concomitant]
     Dates: start: 20101203
  5. ANTIBIOTICS [Concomitant]
     Indication: INFLAMMATORY BOWEL DISEASE
  6. REMICADE [Suspect]
     Indication: CROHN'S DISEASE
     Route: 042
     Dates: start: 20101001
  7. HUMIRA [Concomitant]
     Dates: start: 20101119

REACTIONS (2)
  - CROHN'S DISEASE [None]
  - PANCREATITIS [None]
